FAERS Safety Report 21413128 (Version 1)
Quarter: 2022Q4

REPORT INFORMATION
  Report Type: Report from Study
  Country: US (occurrence: US)
  Receive Date: 20221005
  Receipt Date: 20221005
  Transmission Date: 20230113
  Serious: Yes (Other)
  Sender: FDA-Public Use
  Company Number: US-ABBVIE-22K-163-4411943-00

PATIENT
  Sex: Male

DRUGS (2)
  1. IMBRUVICA [Suspect]
     Active Substance: IBRUTINIB
     Indication: Chronic lymphocytic leukaemia
     Dosage: DISCONTINUED FOR WEEK
     Route: 048
     Dates: start: 202203, end: 2022
  2. IMBRUVICA [Suspect]
     Active Substance: IBRUTINIB
     Indication: Chronic lymphocytic leukaemia
     Route: 048
     Dates: start: 2022

REACTIONS (8)
  - Oral surgery [Unknown]
  - Skin laceration [Unknown]
  - Ulcer [Unknown]
  - Impaired healing [Unknown]
  - Unevaluable event [Unknown]
  - Haemorrhage [Unknown]
  - Rash macular [Recovering/Resolving]
  - Increased tendency to bruise [Unknown]

NARRATIVE: CASE EVENT DATE: 20220101
